FAERS Safety Report 25654688 (Version 1)
Quarter: 2025Q3

REPORT INFORMATION
  Report Type: Spontaneous
  Country: CN (occurrence: CN)
  Receive Date: 20250807
  Receipt Date: 20250807
  Transmission Date: 20251021
  Serious: Yes (Other)
  Sender: GE HEALTHCARE
  Company Number: None

PATIENT
  Age: 66 Year
  Sex: Female
  Weight: 62 kg

DRUGS (4)
  1. VISIPAQUE [Suspect]
     Active Substance: IODIXANOL
     Indication: Angiocardiogram
     Route: 065
     Dates: start: 20250710, end: 20250710
  2. GASTRODIN [Suspect]
     Active Substance: GASTRODIN
     Indication: Dizziness
     Route: 041
     Dates: start: 20250711, end: 20250713
  3. HERBALS [Suspect]
     Active Substance: HERBALS
     Indication: Angina unstable
     Route: 041
     Dates: start: 20250707, end: 20250715
  4. DEXTROSE [Concomitant]
     Active Substance: DEXTROSE MONOHYDRATE
     Indication: Vehicle solution use
     Route: 041
     Dates: start: 20250707, end: 20250715

REACTIONS (3)
  - Henoch-Schonlein purpura [Recovering/Resolving]
  - Dermatitis allergic [Recovering/Resolving]
  - Drug eruption [Recovering/Resolving]

NARRATIVE: CASE EVENT DATE: 20250713
